FAERS Safety Report 13549893 (Version 5)
Quarter: 2017Q3

REPORT INFORMATION
  Report Type: Report from Study
  Country: US (occurrence: US)
  Receive Date: 20170516
  Receipt Date: 20170929
  Transmission Date: 20171127
  Serious: Yes (Hospitalization, Other)
  Sender: FDA-Public Use
  Company Number: US-CORCEPT THERAPEUTICS INC.-US-2017CRT000277

PATIENT

DRUGS (4)
  1. KORLYM [Suspect]
     Active Substance: MIFEPRISTONE
     Indication: ECTOPIC ACTH SYNDROME
     Dosage: 300 MG, QD
     Route: 048
     Dates: start: 20170323, end: 20170406
  2. KORLYM [Suspect]
     Active Substance: MIFEPRISTONE
     Dosage: 600 MG, QD
     Route: 048
     Dates: start: 20170407, end: 20170428
  3. KORLYM [Suspect]
     Active Substance: MIFEPRISTONE
     Dosage: 300 MG, QOD
     Route: 048
     Dates: start: 201705
  4. SPIRONOLACTONE. [Concomitant]
     Active Substance: SPIRONOLACTONE
     Indication: PRODUCT USED FOR UNKNOWN INDICATION
     Dosage: UNK

REACTIONS (16)
  - Pyrexia [Unknown]
  - Alopecia [Not Recovered/Not Resolved]
  - Abdominal pain [Not Recovered/Not Resolved]
  - Asthenia [Recovering/Resolving]
  - Dysgeusia [Not Recovered/Not Resolved]
  - Pulmonary pain [Recovering/Resolving]
  - Back disorder [Recovering/Resolving]
  - Decreased appetite [Recovering/Resolving]
  - Blood pressure increased [Unknown]
  - Constipation [Recovered/Resolved]
  - Back pain [Not Recovered/Not Resolved]
  - Lumbar spinal stenosis [Unknown]
  - Inappropriate schedule of drug administration [Not Recovered/Not Resolved]
  - Pulmonary oedema [Recovering/Resolving]
  - Fatigue [Recovered/Resolved]
  - Blood potassium decreased [Unknown]

NARRATIVE: CASE EVENT DATE: 2017
